FAERS Safety Report 5730332-6 (Version None)
Quarter: 2008Q2

REPORT INFORMATION
  Report Type: 
  Country: None (occurrence: None)
  Receive Date: 20080502
  Receipt Date: 20080417
  Transmission Date: 20081010
  Serious: Yes (Hospitalization)
  Sender: FDA-Public Use
  Company Number: GXKR2008TR03757

PATIENT
  Age: 66 Year
  Sex: Male

DRUGS (6)
  1. OXALIPLATIN [Suspect]
     Indication: CHEMOTHERAPY
     Dosage: 130 MG/M2, (DAY 1 OF 21), 5 CYCLES
     Dates: end: 20040601
  2. IRINOTECAN HCL [Suspect]
     Indication: CHEMOTHERAPY
     Dosage: 180 MG/M2, DAY 1 AND 15 OF 28, 4 CYCLES
  3. LEUCOVORIN CALCIUM [Concomitant]
  4. FLUOROURACIL [Concomitant]
  5. RALTITREXED (RALTITREXED) [Concomitant]
  6. CAPECITABINE (CAPECITABINE) [Concomitant]

REACTIONS (3)
  - CHRONIC MYELOID LEUKAEMIA [None]
  - DRUG INTOLERANCE [None]
  - METASTASES TO LIVER [None]
